FAERS Safety Report 5880018-2 (Version None)
Quarter: 2008Q3

REPORT INFORMATION
  Report Type: 
  Country: None (occurrence: None)
  Receive Date: 20080912
  Receipt Date: 20080902
  Transmission Date: 20090109
  Serious: Yes (Death, Hospitalization)
  Sender: FDA-Public Use
  Company Number: ES-PFIZER INC-2008065512

PATIENT
  Sex: Male

DRUGS (6)
  1. SU-011,248 [Suspect]
     Indication: TRANSITIONAL CELL CARCINOMA
     Route: 048
     Dates: start: 20080528, end: 20080804
  2. DURAGESIC-100 [Concomitant]
     Indication: PAIN
     Route: 048
  3. ALLOPURINOL [Concomitant]
     Route: 048
  4. METFORMIN HCL [Concomitant]
     Route: 048
  5. DISGREN [Concomitant]
     Route: 048
  6. UNIKET [Concomitant]
     Route: 048

REACTIONS (3)
  - PLEURAL EFFUSION [None]
  - PNEUMONIA ASPIRATION [None]
  - URINARY TRACT INFECTION [None]
